FAERS Safety Report 9213561 (Version 1)
Quarter: 2013Q2

REPORT INFORMATION
  Report Type: Spontaneous
  Country: US (occurrence: None)
  Receive Date: 20130404
  Receipt Date: 20130404
  Transmission Date: 20140414
  Serious: Yes (Life-Threatening, Hospitalization, Disabling)
  Sender: FDA-Public Use
  Company Number: None

PATIENT
  Age: 54 Year
  Sex: Male
  Weight: 70.76 kg

DRUGS (1)
  1. PHENYLEPHRINE [Suspect]
     Indication: PRIAPISM
     Dates: start: 20120411, end: 20120411

REACTIONS (4)
  - Hypertension [None]
  - Bradycardia [None]
  - Myocardial infarction [None]
  - Incorrect dose administered [None]
